FAERS Safety Report 23742552 (Version 3)
Quarter: 2024Q3

REPORT INFORMATION
  Report Type: Report from Study
  Country: ZA (occurrence: ZA)
  Receive Date: 20240415
  Receipt Date: 20240821
  Transmission Date: 20241017
  Serious: Yes (Other)
  Sender: NOVARTIS
  Company Number: ZA-002147023-NVSC2024ZA056754

PATIENT
  Age: 35 Year
  Sex: Female

DRUGS (3)
  1. SIPONIMOD [Suspect]
     Active Substance: SIPONIMOD
     Indication: Multiple sclerosis
     Dosage: 2 MG, Q48H
     Route: 048
     Dates: start: 20220605
  2. SIPONIMOD [Suspect]
     Active Substance: SIPONIMOD
     Dosage: 2 MG, QD
     Route: 048
  3. SIPONIMOD [Suspect]
     Active Substance: SIPONIMOD
     Dosage: 2 MG, Q48H
     Route: 048

REACTIONS (14)
  - Influenza [Unknown]
  - Cough [Unknown]
  - Multiple sclerosis relapse [Unknown]
  - Dysarthria [Unknown]
  - Dysphagia [Unknown]
  - Pain in extremity [Unknown]
  - Optic nerve disorder [Unknown]
  - Eye disorder [Unknown]
  - Muscle twitching [Unknown]
  - Aphonia [Unknown]
  - Memory impairment [Unknown]
  - Tremor [Unknown]
  - Inappropriate schedule of product administration [Not Recovered/Not Resolved]
  - Feeling abnormal [Not Recovered/Not Resolved]
